FAERS Safety Report 10964857 (Version 1)
Quarter: 2015Q1

REPORT INFORMATION
  Report Type: Spontaneous
  Country: US (occurrence: US)
  Receive Date: 20150330
  Receipt Date: 20150330
  Transmission Date: 20150721
  Serious: No
  Sender: FDA-Public Use
  Company Number: US-TEVA-474112USA

PATIENT
  Sex: Female

DRUGS (2)
  1. 100% PURE GREEN COFFEE BEAN EXTRACT [Suspect]
     Active Substance: DIETARY SUPPLEMENT
     Dates: start: 201401
  2. WARFARIN [Suspect]
     Active Substance: WARFARIN

REACTIONS (2)
  - Hypercoagulation [Unknown]
  - International normalised ratio decreased [Recovered/Resolved]
